FAERS Safety Report 4824404-8 (Version None)
Quarter: 2005Q4

REPORT INFORMATION
  Report Type: 
  Country: None (occurrence: None)
  Receive Date: 20051108
  Receipt Date: 20051027
  Transmission Date: 20060501
  Serious: Yes (Hospitalization, Other)
  Sender: FDA-Public Use
  Company Number: USA020921790

PATIENT
  Age: 53 Year
  Sex: Female
  Weight: 100 kg

DRUGS (10)
  1. HUMALOG [Suspect]
     Indication: DIABETES MELLITUS
     Dosage: 10 U DAY
     Dates: start: 20020101
  2. HUMALOG MIX 75/25 [Suspect]
     Indication: DIABETES MELLITUS
  3. HUMALOG MIX 50/50 [Suspect]
     Indication: DIABETES MELLITUS
     Dates: start: 20020101
  4. HUMULIN N [Suspect]
     Indication: DIABETES MELLITUS
  5. HUMULIN L [Suspect]
     Indication: DIABETES MELLITUS
     Dosage: 5 U DAY
     Dates: start: 20041001
  6. HUMALOG [Suspect]
     Indication: DIABETES MELLITUS
     Dosage: 25 U DAY
     Dates: start: 20020801
  7. AMBIEN [Concomitant]
  8. LORAZEPAM [Concomitant]
  9. ASPIRIN [Concomitant]
  10. PRANDIN (DEFLAZACORT) [Concomitant]

REACTIONS (27)
  - ABASIA [None]
  - ABDOMINAL DISTENSION [None]
  - ALLERGY TO CHEMICALS [None]
  - ARRHYTHMIA [None]
  - BLOOD GLUCOSE FLUCTUATION [None]
  - BLOOD GLUCOSE INCREASED [None]
  - BREAST TENDERNESS [None]
  - CARDIAC DISORDER [None]
  - DIZZINESS [None]
  - DYSPNOEA [None]
  - EXPOSURE TO CHEMICAL POLLUTION [None]
  - FACE OEDEMA [None]
  - GENERALISED OEDEMA [None]
  - MULTIPLE CHEMICAL SENSITIVITY [None]
  - MUSCLE SPASMS [None]
  - NERVE INJURY [None]
  - NIPPLE PAIN [None]
  - PAIN [None]
  - PARAESTHESIA [None]
  - REACTION TO DRUG EXCIPIENTS [None]
  - THROAT TIGHTNESS [None]
  - TIC [None]
  - TREATMENT NONCOMPLIANCE [None]
  - TRIGGER FINGER [None]
  - VENTRICULAR EXTRASYSTOLES [None]
  - VICTIM OF ABUSE [None]
  - WEIGHT INCREASED [None]
